FAERS Safety Report 19475047 (Version 1)
Quarter: 2021Q2

REPORT INFORMATION
  Report Type: Other
  Country: US (occurrence: US)
  Receive Date: 20210630
  Receipt Date: 20210630
  Transmission Date: 20210717
  Serious: Yes (Other)
  Sender: FDA-Public Use
  Company Number: US-ROCHE-2853377

PATIENT
  Sex: Male

DRUGS (4)
  1. AVONEX [Concomitant]
     Active Substance: INTERFERON BETA-1A
     Dosage: 30 MCG/ 0.5 ML
     Route: 030
  2. OCREVUS [Suspect]
     Active Substance: OCRELIZUMAB
     Indication: MULTIPLE SCLEROSIS
     Route: 042
  3. OCREVUS [Suspect]
     Active Substance: OCRELIZUMAB
     Dosage: 30 MG/ML
     Route: 042
  4. NOVOLOG [Concomitant]
     Active Substance: INSULIN ASPART
     Dosage: MIX 70 30 U 100 INSULIN 100 UNIT/ML
     Route: 058

REACTIONS (13)
  - Pyrexia [Unknown]
  - Oropharyngeal pain [Unknown]
  - Chills [Unknown]
  - Respiratory tract infection [Unknown]
  - Dyspnoea [Unknown]
  - Erectile dysfunction [Unknown]
  - Fatigue [Unknown]
  - Ear pain [Unknown]
  - Speech disorder [Unknown]
  - Defaecation urgency [Unknown]
  - Hepatitis [Unknown]
  - Pruritus [Unknown]
  - Bladder disorder [Unknown]
